FAERS Safety Report 25279225 (Version 1)
Quarter: 2025Q2

REPORT INFORMATION
  Report Type: Spontaneous
  Country: DE (occurrence: DE)
  Receive Date: 20250507
  Receipt Date: 20250507
  Transmission Date: 20250717
  Serious: Yes (Hospitalization, Other)
  Sender: ALEXION PHARMACEUTICALS
  Company Number: DE-AstraZeneca-CH-00859073AM

PATIENT
  Age: 88 Year

DRUGS (6)
  1. DAPAGLIFLOZIN [Suspect]
     Active Substance: DAPAGLIFLOZIN
     Indication: Cardiac failure
     Dosage: 10 MILLIGRAM, QD
  2. AMIODARONE [Concomitant]
     Active Substance: AMIODARONE
     Route: 065
  3. BISOPROLOL [Concomitant]
     Active Substance: BISOPROLOL
     Route: 065
  4. LOSARTAN [Concomitant]
     Active Substance: LOSARTAN
     Route: 065
  5. MAGNESIUM [Concomitant]
     Active Substance: MAGNESIUM
     Route: 065
  6. XARELTO [Concomitant]
     Active Substance: RIVAROXABAN
     Route: 065

REACTIONS (7)
  - Atrial fibrillation [Recovered/Resolved]
  - Hepatic steatosis [Unknown]
  - Pneumonia [Unknown]
  - Electrocardiogram QT prolonged [Unknown]
  - COVID-19 [Unknown]
  - Wrong technique in product usage process [Unknown]
  - Product dose omission issue [Unknown]
